FAERS Safety Report 8782347 (Version 1)
Quarter: 2012Q4

REPORT INFORMATION
  Report Type: 
  Country: US (occurrence: US)
  Receive Date: 20120913
  Receipt Date: 20120913
  Transmission Date: 20130627
  Serious: No
  Sender: FDA-Public Use
  Company Number: US-VERTEX PHARMACEUTICAL INC.-AE-2012-010259

PATIENT

DRUGS (5)
  1. INCIVEK [Suspect]
     Indication: HEPATITIS C
     Route: 048
     Dates: start: 20120525, end: 20120711
  2. PEGASYS [Concomitant]
     Indication: HEPATITIS C
     Dates: start: 20120525, end: 20120607
  3. PEGASYS [Concomitant]
     Dates: start: 20120621, end: 20120705
  4. RIBAVIRIN [Concomitant]
     Indication: HEPATITIS C
     Route: 048
     Dates: start: 20120525, end: 20120621
  5. RIBAVIRIN [Concomitant]
     Route: 048
     Dates: start: 20120621, end: 20120705

REACTIONS (1)
  - Thrombocytopenia [Unknown]
